FAERS Safety Report 4298473-0 (Version None)
Quarter: 2004Q1

REPORT INFORMATION
  Report Type: 
  Country: None (occurrence: None)
  Receive Date: 20040218
  Receipt Date: 20030926
  Transmission Date: 20041129
  Serious: Yes (Other)
  Sender: FDA-Public Use
  Company Number: US-BRISTOL-MYERS SQUIBB COMPANY-12400206

PATIENT
  Age: 56 Year
  Sex: Male

DRUGS (12)
  1. STADOL [Suspect]
     Indication: BACK PAIN
  2. STADOL [Suspect]
     Indication: NECK PAIN
  3. STADOL [Suspect]
     Indication: BACK PAIN
     Dates: start: 19940901
  4. STADOL [Suspect]
     Indication: NECK PAIN
     Dates: start: 19940901
  5. PROZAC [Concomitant]
  6. BUSPAR [Concomitant]
  7. PHENERGAN [Concomitant]
  8. TYLENOL W/ CODEINE NO. 3 [Concomitant]
  9. ROBAXIN [Concomitant]
  10. VISTARIL [Concomitant]
  11. FIORINAL #3 [Concomitant]
  12. AMITRIPTYLINE [Concomitant]

REACTIONS (1)
  - DEPENDENCE [None]
